FAERS Safety Report 6373346-8 (Version None)
Quarter: 2009Q3

REPORT INFORMATION
  Report Type: 
  Country: None (occurrence: None)
  Receive Date: 20090924
  Receipt Date: 20090407
  Transmission Date: 20100115
  Serious: Yes (Other)
  Sender: FDA-Public Use
  Company Number: US-ASTRAZENECA-2009UW08762

PATIENT
  Age: 9670 Day
  Sex: Female

DRUGS (4)
  1. SEROQUEL [Suspect]
     Indication: BIPOLAR DISORDER
     Route: 048
     Dates: start: 20011101, end: 20020601
  2. SEROQUEL [Suspect]
     Indication: DEPRESSION
     Route: 048
     Dates: start: 20011101, end: 20020601
  3. RISPERDAL [Concomitant]
     Dosage: 0.5 MG TO 1 MG PER DAY
     Dates: start: 19960601, end: 19970401
  4. ZYPREXA [Concomitant]
     Dosage: 5 MG TO 10 MG PER DAY
     Dates: start: 19970401, end: 20020101

REACTIONS (1)
  - PANCREATITIS ACUTE [None]
